FAERS Safety Report 25340931 (Version 1)
Quarter: 2025Q2

REPORT INFORMATION
  Report Type: Spontaneous
  Country: US (occurrence: US)
  Receive Date: 20250521
  Receipt Date: 20250521
  Transmission Date: 20250716
  Serious: No
  Sender: AVKARE
  Company Number: US-AvKARE-2177148

PATIENT
  Sex: Male

DRUGS (2)
  1. ARTIFICIAL TEARS (DEXTRAN 70\GLYCERIN\HYPROMELLOSES) [Suspect]
     Active Substance: DEXTRAN 70\GLYCERIN\HYPROMELLOSES
  2. ARTIFICIAL TEARS (GLYCERIN\HYPROMELLOSES\POLYETHYLENE GLYCOL 400) [Suspect]
     Active Substance: GLYCERIN\HYPROMELLOSES\POLYETHYLENE GLYCOL 400

REACTIONS (1)
  - Eye irritation [Unknown]

NARRATIVE: CASE EVENT DATE: 20240903
